FAERS Safety Report 8763378 (Version 1)
Quarter: 2012Q4

REPORT INFORMATION
  Report Type: 
  Country: US (occurrence: US)
  Receive Date: 20120831
  Receipt Date: 20120831
  Transmission Date: 20130627
  Serious: No
  Sender: FDA-Public Use
  Company Number: US-009507513-96061009

PATIENT

DRUGS (1)
  1. PEPCID AC [Suspect]
     Dosage: 70 mg, UNK
     Route: 048
     Dates: start: 199605, end: 199605

REACTIONS (2)
  - Accidental exposure to product [Unknown]
  - Overdose [Unknown]
